FAERS Safety Report 12786887 (Version 2)
Quarter: 2016Q4

REPORT INFORMATION
  Report Type: Spontaneous
  Country: US (occurrence: US)
  Receive Date: 20160927
  Receipt Date: 20161005
  Transmission Date: 20170207
  Serious: No
  Sender: FDA-Public Use
  Company Number: US-009507513-1609USA008101

PATIENT
  Age: 40 Year
  Sex: Female

DRUGS (2)
  1. FOLLISTIM AQ [Suspect]
     Active Substance: FOLLITROPIN
     Dosage: 375 UNITES, DAILY AS DIRECT
     Route: 058
     Dates: start: 20160829
  2. MENOPUR [Concomitant]
     Active Substance: FOLLICLE STIMULATING HORMONE BETA POLYPEPTIDE\LUTROPIN ALFA

REACTIONS (3)
  - Drug ineffective [Unknown]
  - Adverse event [Unknown]
  - Product quality issue [Unknown]
